FAERS Safety Report 5376675-X (Version None)
Quarter: 2007Q2

REPORT INFORMATION
  Report Type: 
  Country: None (occurrence: None)
  Receive Date: 20070629
  Receipt Date: 20070618
  Transmission Date: 20071010
  Serious: Yes (Life-Threatening, Hospitalization)
  Sender: FDA-Public Use
  Company Number: 150003L07JPN

PATIENT
  Age: 25 Year
  Sex: Female

DRUGS (2)
  1. CHORIONIC GONADOTROPIN [Suspect]
     Indication: IN VITRO FERTILISATION
  2. MENOTROPINS [Suspect]
     Indication: IN VITRO FERTILISATION

REACTIONS (7)
  - ANAEMIA [None]
  - OVARIAN HAEMORRHAGE [None]
  - OVARIAN HYPERSTIMULATION SYNDROME [None]
  - OVARIAN NECROSIS [None]
  - OVARIAN RUPTURE [None]
  - OVARIAN TORSION [None]
  - WHITE BLOOD CELL COUNT INCREASED [None]
